FAERS Safety Report 13570683 (Version 1)
Quarter: 2017Q2

REPORT INFORMATION
  Report Type: Spontaneous
  Country: IL (occurrence: IL)
  Receive Date: 20170523
  Receipt Date: 20170523
  Transmission Date: 20170830
  Serious: Yes (Death, Hospitalization, Other)
  Sender: FDA-Public Use
  Company Number: IL-BRISTOL-MYERS SQUIBB COMPANY-BMS-2017-012781

PATIENT
  Age: 68 Year
  Sex: Female

DRUGS (1)
  1. SPRYCEL [Suspect]
     Active Substance: DASATINIB
     Indication: ACUTE LYMPHOCYTIC LEUKAEMIA
     Dosage: 140 MG, QD
     Route: 065
     Dates: start: 2016

REACTIONS (3)
  - Cholecystitis acute [Unknown]
  - Pleural effusion [Unknown]
  - Death [Fatal]
